FAERS Safety Report 5108292-0 (Version None)
Quarter: 2006Q3

REPORT INFORMATION
  Report Type: 
  Country: None (occurrence: None)
  Receive Date: 20060914
  Receipt Date: 20060914
  Transmission Date: 20061208
  Serious: No
  Sender: FDA-Public Use
  Company Number: None

PATIENT
  Age: 58 Year
  Sex: Male
  Weight: 82.5547 kg

DRUGS (4)
  1. HCTZ/ LISINOPRIL 25/40MG [Suspect]
     Indication: HYPERTENSION
     Dosage: 25/40MG DAILY PO
     Route: 048
     Dates: start: 20050506, end: 20060310
  2. ATENOLOL [Concomitant]
  3. VARDENAFIL [Concomitant]
  4. METHOCARBAMOL [Concomitant]

REACTIONS (1)
  - HYPERKALAEMIA [None]
